FAERS Safety Report 19269242 (Version 1)
Quarter: 2021Q2

REPORT INFORMATION
  Report Type: Spontaneous
  Country: US (occurrence: US)
  Receive Date: 20210518
  Receipt Date: 20210518
  Transmission Date: 20210717
  Serious: No
  Sender: FDA-Public Use
  Company Number: None

PATIENT
  Age: 39 Year
  Sex: Female
  Weight: 51.75 kg

DRUGS (4)
  1. NP THYROID [Concomitant]
     Active Substance: LEVOTHYROXINE\LIOTHYRONINE
  2. ARMOUR 15MG [Concomitant]
  3. B ?12 TUMERIC [Concomitant]
  4. NP THYROID [Suspect]
     Active Substance: LEVOTHYROXINE\LIOTHYRONINE
     Indication: AUTOIMMUNE THYROIDITIS
     Dosage: ?          QUANTITY:90 TABLET(S);?
     Route: 048
     Dates: start: 20210228

REACTIONS (8)
  - Amenorrhoea [None]
  - Menstruation irregular [None]
  - Depression [None]
  - Infertility female [None]
  - Constipation [None]
  - Weight increased [None]
  - Fatigue [None]
  - Weight decreased [None]
